FAERS Safety Report 12624489 (Version 1)
Quarter: 2016Q3

REPORT INFORMATION
  Report Type: Spontaneous
  Country: IT (occurrence: IT)
  Receive Date: 20160805
  Receipt Date: 20160805
  Transmission Date: 20161109
  Serious: Yes (Other)
  Sender: FDA-Public Use
  Company Number: IT-ROCHE-1808145

PATIENT
  Age: 43 Year
  Sex: Male

DRUGS (4)
  1. COCAINE [Suspect]
     Active Substance: COCAINE
     Indication: PRODUCT USED FOR UNKNOWN INDICATION
     Route: 065
  2. HEROIN [Suspect]
     Active Substance: DIACETYLMORPHINE
     Indication: PRODUCT USED FOR UNKNOWN INDICATION
     Route: 065
  3. CLONAZEPAM. [Suspect]
     Active Substance: CLONAZEPAM
     Indication: PRODUCT USED FOR UNKNOWN INDICATION
     Route: 048
  4. VALIUM [Suspect]
     Active Substance: DIAZEPAM
     Indication: PRODUCT USED FOR UNKNOWN INDICATION
     Dosage: ^5MG/ML ORAL DROPS, SOLUTION^ 20 ML BOTTLE
     Route: 048

REACTIONS (4)
  - Intentional self-injury [Unknown]
  - Loss of consciousness [Recovering/Resolving]
  - Substance abuse [Unknown]
  - Drug abuse [Unknown]

NARRATIVE: CASE EVENT DATE: 20160515
